FAERS Safety Report 5477747-1 (Version None)
Quarter: 2007Q4

REPORT INFORMATION
  Report Type: 
  Country: None (occurrence: None)
  Receive Date: 20071002
  Receipt Date: 20071002
  Transmission Date: 20080405
  Serious: Yes (Other)
  Sender: FDA-Public Use
  Company Number: None

PATIENT
  Age: 45 Year
  Sex: Male
  Weight: 79.3795 kg

DRUGS (1)
  1. SULINDAC [Suspect]
     Indication: INFLAMMATION
     Dosage: 200 MG 2 PER DAY PO
     Route: 048
     Dates: start: 20070914, end: 20070919

REACTIONS (1)
  - DRUG HYPERSENSITIVITY [None]
